FAERS Safety Report 15531322 (Version 1)
Quarter: 2018Q4

REPORT INFORMATION
  Report Type: Spontaneous
  Country: US (occurrence: US)
  Receive Date: 20181019
  Receipt Date: 20181019
  Transmission Date: 20190205
  Serious: No
  Sender: FDA-Public Use
  Company Number: US-009507513-1810USA006007

PATIENT
  Age: 27 Year
  Sex: Female
  Weight: 113.38 kg

DRUGS (1)
  1. NEXPLANON [Suspect]
     Active Substance: ETONOGESTREL
     Dosage: 68MG, 1 IMPLANT
     Route: 059
     Dates: start: 20170118, end: 20181010

REACTIONS (2)
  - Complication of device removal [Recovered/Resolved]
  - Device breakage [Recovered/Resolved]

NARRATIVE: CASE EVENT DATE: 20181010
